FAERS Safety Report 8285115 (Version 3)
Quarter: 2013Q1

REPORT INFORMATION
  Report Type: Spontaneous
  Country: JP (occurrence: JP)
  Receive Date: 20111212
  Receipt Date: 20130321
  Transmission Date: 20140127
  Serious: Yes (Hospitalization)
  Sender: FDA-Public Use
  Company Number: JP-MERCK-1112USA00524

PATIENT
  Age: 33 Year
  Sex: Female

DRUGS (4)
  1. ORGADRONE [Suspect]
     Indication: B-CELL TYPE ACUTE LEUKAEMIA
  2. CYCLOPHOSPHAMIDE [Suspect]
     Indication: B-CELL TYPE ACUTE LEUKAEMIA
  3. VINCRISTINE SULFATE [Suspect]
     Indication: B-CELL TYPE ACUTE LEUKAEMIA
     Route: 042
  4. DOXORUBICIN [Suspect]
     Indication: B-CELL TYPE ACUTE LEUKAEMIA
     Route: 042

REACTIONS (1)
  - Pseudomonas infection [Recovered/Resolved]
